FAERS Safety Report 14174504 (Version 1)
Quarter: 2017Q4

REPORT INFORMATION
  Report Type: Not Available
  Country: None (occurrence: US)
  Receive Date: 20171109
  Receipt Date: 20171109
  Transmission Date: 20180321
  Serious: No
  Sender: FDA-Public Use
  Company Number: US-AKORN-62988

PATIENT
  Sex: Female

DRUGS (1)
  1. DORZOLAMIDE HCL-OPHTHALMIC SOLUTION [Suspect]
     Active Substance: DORZOLAMIDE HYDROCHLORIDE

REACTIONS (2)
  - Eye inflammation [Recovered/Resolved]
  - Ocular hyperaemia [Recovered/Resolved]
